FAERS Safety Report 15885036 (Version 1)
Quarter: 2019Q1

REPORT INFORMATION
  Report Type: Spontaneous
  Country: FR (occurrence: FR)
  Receive Date: 20190129
  Receipt Date: 20190129
  Transmission Date: 20190417
  Serious: Yes (Hospitalization)
  Sender: FDA-Public Use
  Company Number: FR-PFIZER INC-2019034753

PATIENT
  Age: 44 Year
  Sex: Male

DRUGS (2)
  1. SKENAN [Suspect]
     Active Substance: MORPHINE SULFATE
     Indication: DRUG USE DISORDER
     Dosage: 4 DF, SINGLE
     Route: 048
     Dates: start: 20180822, end: 20180822
  2. LYRICA [Suspect]
     Active Substance: PREGABALIN
     Indication: DRUG USE DISORDER
     Dosage: 4 DF, SINGLE
     Route: 048
     Dates: start: 20180822, end: 20180822

REACTIONS (2)
  - Hyperglycaemia [Recovered/Resolved]
  - Drug abuse [Not Recovered/Not Resolved]

NARRATIVE: CASE EVENT DATE: 20180822
